FAERS Safety Report 23769742 (Version 1)
Quarter: 2024Q2

REPORT INFORMATION
  Report Type: Spontaneous
  Country: US (occurrence: None)
  Receive Date: 20240420
  Receipt Date: 20240420
  Transmission Date: 20240716
  Serious: Yes (Life-Threatening)
  Sender: FDA-Public Use
  Company Number: None

PATIENT
  Sex: Female

DRUGS (1)
  1. ZYPREXA [Suspect]
     Active Substance: OLANZAPINE
     Dates: start: 20240417

REACTIONS (8)
  - Dizziness [None]
  - Drooling [None]
  - Visual impairment [None]
  - Memory impairment [None]
  - Rash [None]
  - Dysuria [None]
  - Loss of libido [None]
  - Heart rate decreased [None]

NARRATIVE: CASE EVENT DATE: 20240417
